FAERS Safety Report 21056985 (Version 8)
Quarter: 2024Q1

REPORT INFORMATION
  Report Type: Spontaneous
  Country: US (occurrence: US)
  Receive Date: 20220708
  Receipt Date: 20240304
  Transmission Date: 20240409
  Serious: Yes (Hospitalization)
  Sender: FDA-Public Use
  Company Number: US-DSJP-DSU-2022-123529AA

PATIENT
  Age: 41 Year
  Sex: Male

DRUGS (3)
  1. TURALIO [Suspect]
     Active Substance: PEXIDARTINIB HYDROCHLORIDE
     Indication: Connective tissue neoplasm
     Dosage: 200 MG, (DAILY MORNING(QAM))
     Route: 048
     Dates: start: 20211104
  2. TURALIO [Suspect]
     Active Substance: PEXIDARTINIB HYDROCHLORIDE
     Indication: Soft tissue neoplasm
     Dosage: 400 MG, (DAILY EVENING (QPM))
     Route: 048
     Dates: start: 20211104
  3. TURALIO [Suspect]
     Active Substance: PEXIDARTINIB HYDROCHLORIDE
     Dosage: 250 MG, BID
     Route: 048
     Dates: start: 20211104

REACTIONS (13)
  - Hypertension [Recovered/Resolved]
  - Hypertension [Not Recovered/Not Resolved]
  - Sunburn [Not Recovered/Not Resolved]
  - Skeletal injury [Recovered/Resolved]
  - Laboratory test abnormal [Recovered/Resolved]
  - Unevaluable event [Unknown]
  - Brain fog [Not Recovered/Not Resolved]
  - Fatigue [Not Recovered/Not Resolved]
  - Rash [Recovered/Resolved]
  - Product physical issue [Unknown]
  - Product container issue [Unknown]
  - Product use issue [Unknown]
  - Product label confusion [Unknown]

NARRATIVE: CASE EVENT DATE: 20230501
